FAERS Safety Report 15368245 (Version 1)
Quarter: 2018Q3

REPORT INFORMATION
  Report Type: Spontaneous
  Country: JP (occurrence: JP)
  Receive Date: 20180910
  Receipt Date: 20180910
  Transmission Date: 20181010
  Serious: Yes (Other)
  Sender: FDA-Public Use
  Company Number: PHJP2018JP015604

PATIENT

DRUGS (1)
  1. NEORAL [Suspect]
     Active Substance: CYCLOSPORINE
     Indication: INTERSTITIAL LUNG DISEASE
     Dosage: UNK, BID
     Route: 048

REACTIONS (5)
  - Chromaturia [Unknown]
  - Product use in unapproved indication [Unknown]
  - Drug level changed [Unknown]
  - Bladder cancer [Unknown]
  - Urine output decreased [Unknown]
